FAERS Safety Report 4765315-6 (Version None)
Quarter: 2005Q3

REPORT INFORMATION
  Report Type: 
  Country: None (occurrence: None)
  Receive Date: 20050906
  Receipt Date: 20050825
  Transmission Date: 20060218
  Serious: Yes (Disabling)
  Sender: FDA-Public Use
  Company Number: 2005095736

PATIENT
  Sex: Male

DRUGS (5)
  1. BEXTRA [Suspect]
     Indication: MYOFASCIAL PAIN SYNDROME
     Dosage: ORAL
     Route: 048
     Dates: start: 20031118, end: 20040319
  2. CELEBREX [Suspect]
     Indication: MYOFASCIAL PAIN SYNDROME
     Dosage: ORAL
     Route: 048
     Dates: start: 20000626
  3. ALL OTHER THERAPEUTIC PRODUCTS (ALL OTHER THERAPEUTIC PRODUCTS) [Concomitant]
  4. VIOXX [Concomitant]
  5. MELOXICAM (MELOXICAM) [Concomitant]

REACTIONS (3)
  - EMOTIONAL DISTRESS [None]
  - INJURY [None]
  - LEFT VENTRICULAR FAILURE [None]
